FAERS Safety Report 9212699 (Version 1)
Quarter: 2013Q2

REPORT INFORMATION
  Report Type: Spontaneous
  Country: US (occurrence: US)
  Receive Date: 20130405
  Receipt Date: 20130405
  Transmission Date: 20140414
  Serious: No
  Sender: FDA-Public Use
  Company Number: US-BIOGENIDEC-2013BI029664

PATIENT
  Sex: Female

DRUGS (1)
  1. TYSABRI [Suspect]
     Indication: MULTIPLE SCLEROSIS
     Route: 042
     Dates: start: 20120215, end: 20120320

REACTIONS (10)
  - Musculoskeletal disorder [Unknown]
  - Arthropathy [Unknown]
  - Fall [Unknown]
  - Suture insertion [Unknown]
  - Stress [Unknown]
  - Memory impairment [Unknown]
  - Pain in extremity [Unknown]
  - Pain [Unknown]
  - General physical health deterioration [Unknown]
  - Malaise [Unknown]
